FAERS Safety Report 17119422 (Version 1)
Quarter: 2019Q4

REPORT INFORMATION
  Report Type: Spontaneous
  Country: ZA (occurrence: ZA)
  Receive Date: 20191206
  Receipt Date: 20191206
  Transmission Date: 20200122
  Serious: Yes (Other)
  Sender: FDA-Public Use
  Company Number: ZA-009507513-1912ZAF000495

PATIENT

DRUGS (2)
  1. BRIDION [Suspect]
     Active Substance: SUGAMMADEX
     Indication: NEUROMUSCULAR BLOCKADE REVERSAL
     Dosage: UNK
     Dates: start: 20191118
  2. NEOSTIGMINE METHYLSULFATE. [Suspect]
     Active Substance: NEOSTIGMINE METHYLSULFATE
     Dosage: UNK
     Dates: start: 20191118

REACTIONS (3)
  - Bradycardia [Unknown]
  - Hypotension [Unknown]
  - Apnoea [Unknown]

NARRATIVE: CASE EVENT DATE: 20191118
